FAERS Safety Report 7954917-1 (Version None)
Quarter: 2011Q4

REPORT INFORMATION
  Report Type: 
  Country: None (occurrence: None)
  Receive Date: 20111202
  Receipt Date: 20111125
  Transmission Date: 20120403
  Serious: Yes (Hospitalization)
  Sender: FDA-Public Use
  Company Number: FR-ABBOTT-11P-056-0877627-00

PATIENT
  Sex: Male

DRUGS (4)
  1. NORVIR [Suspect]
     Indication: HIV INFECTION
     Route: 048
     Dates: start: 20091228
  2. TRUVADA [Suspect]
     Indication: HIV INFECTION
     Dosage: 200MG/245MG ONCE DAILY
     Route: 048
     Dates: start: 20060105
  3. REYATAZ [Suspect]
     Indication: HIV INFECTION
     Route: 048
     Dates: start: 20091228
  4. CHLORHEXIDINE GLUCONATE [Concomitant]
     Indication: PRODUCT USED FOR UNKNOWN INDICATION
     Route: 061
     Dates: start: 20100308

REACTIONS (2)
  - HYPERURICAEMIA [None]
  - RENAL COLIC [None]
